FAERS Safety Report 4950647-9 (Version None)
Quarter: 2006Q1

REPORT INFORMATION
  Report Type: 
  Country: None (occurrence: None)
  Receive Date: 20060321
  Receipt Date: 20060321
  Transmission Date: 20060701
  Serious: Yes (Other)
  Sender: FDA-Public Use
  Company Number: None

PATIENT
  Age: 8 Month
  Sex: Female

DRUGS (2)
  1. SYNAGIS [Suspect]
     Dosage: 50 MG VIAL
     Route: 030
  2. SYNAGIS [Suspect]
     Dosage: 100 MG VIAL
     Route: 030

REACTIONS (1)
  - CRYING [None]
